FAERS Safety Report 6085593-3 (Version None)
Quarter: 2009Q1

REPORT INFORMATION
  Report Type: 
  Country: None (occurrence: None)
  Receive Date: 20090217
  Receipt Date: 20090217
  Transmission Date: 20090719
  Serious: Yes (Other)
  Sender: FDA-Public Use
  Company Number: None

PATIENT
  Age: 34 Year
  Sex: Female
  Weight: 72.5755 kg

DRUGS (1)
  1. YAZ [Suspect]
     Indication: CONTRACEPTION
     Dosage: I PILL DAILY PO
     Route: 048
     Dates: start: 20081101, end: 20090129

REACTIONS (4)
  - DEAFNESS NEUROSENSORY [None]
  - DYSPHONIA [None]
  - EAR DISCOMFORT [None]
  - TINNITUS [None]
